FAERS Safety Report 13748861 (Version 1)
Quarter: 2017Q3

REPORT INFORMATION
  Report Type: Spontaneous
  Country: US (occurrence: US)
  Receive Date: 20170712
  Receipt Date: 20170712
  Transmission Date: 20171127
  Serious: Yes (Disabling)
  Sender: FDA-Public Use
  Company Number: None

PATIENT
  Age: 72 Year
  Sex: Male
  Weight: 76.5 kg

DRUGS (3)
  1. MULTI VITAMIN [Concomitant]
     Active Substance: VITAMINS
  2. ATIVAN [Concomitant]
     Active Substance: LORAZEPAM
  3. ELIQUIS [Suspect]
     Active Substance: APIXABAN
     Indication: THROMBOSIS
     Route: 048

REACTIONS (4)
  - Arthralgia [None]
  - Musculoskeletal pain [None]
  - Movement disorder [None]
  - Neck pain [None]

NARRATIVE: CASE EVENT DATE: 20170201
